FAERS Safety Report 8506549-4 (Version None)
Quarter: 2012Q3

REPORT INFORMATION
  Report Type: 
  Country: None (occurrence: None)
  Receive Date: 20120712
  Receipt Date: 20120706
  Transmission Date: 20120928
  Serious: Yes (Other)
  Sender: FDA-Public Use
  Company Number: DE-B.I. PHARMACEUTICALS,INC./RIDGEFIELD-2012-DE-00731DE

PATIENT
  Sex: Female

DRUGS (5)
  1. CONJUGATED ESTROGENS [Concomitant]
     Dosage: 1 ANZ
  2. METOPROLOL SUCCINATE [Concomitant]
     Dosage: 2 ANZ
  3. ATACAND [Concomitant]
     Dosage: 1 ANZ
  4. ESCITALOPRAM [Concomitant]
     Dosage: 1 ANZ
  5. PRADAXA [Suspect]
     Indication: ATRIAL FIBRILLATION
     Dosage: 2 ANZ
     Route: 048
     Dates: start: 20111001

REACTIONS (2)
  - HAEMORRHOIDAL HAEMORRHAGE [None]
  - ANAL PROLAPSE [None]
